FAERS Safety Report 4303179-5 (Version None)
Quarter: 2004Q1

REPORT INFORMATION
  Report Type: 
  Country: None (occurrence: None)
  Receive Date: 20040126
  Receipt Date: 20030926
  Transmission Date: 20041129
  Serious: No
  Sender: FDA-Public Use
  Company Number: USA030948372

PATIENT
  Age: 14 Year
  Sex: Female
  Weight: 45.3597 kg

DRUGS (1)
  1. STRATTERA [Suspect]
     Indication: ATTENTION DEFICIT/HYPERACTIVITY DISORDER
     Dosage: 60MG/DAY
     Dates: start: 20030801, end: 20030901

REACTIONS (2)
  - COMMUNICATION DISORDER [None]
  - DEPRESSION [None]
